FAERS Safety Report 25719694 (Version 8)
Quarter: 2025Q4

REPORT INFORMATION
  Report Type: Report from Study
  Country: US (occurrence: US)
  Receive Date: 20250825
  Receipt Date: 20251106
  Transmission Date: 20260117
  Serious: No
  Sender: SANDOZ
  Company Number: US-SANDOZ-SDZ2025US060509

PATIENT
  Age: 55 Year
  Sex: Female

DRUGS (4)
  1. HYRIMOZ [Suspect]
     Active Substance: ADALIMUMAB-ADAZ
     Indication: Crohn^s disease
     Dosage: 40 MG, ONCE EVERY TWO WEEKS
     Route: 058
     Dates: start: 20240501
  2. HYRIMOZ [Suspect]
     Active Substance: ADALIMUMAB-ADAZ
     Indication: Crohn^s disease
     Dosage: 40 MG, ONCE EVERY TWO WEEKS
     Route: 058
     Dates: start: 20240501
  3. HYRIMOZ [Suspect]
     Active Substance: ADALIMUMAB-ADAZ
     Dosage: 0.4 ML, Q2W
     Route: 058
     Dates: start: 20240529
  4. HYRIMOZ [Suspect]
     Active Substance: ADALIMUMAB-ADAZ
     Dosage: 0.4 ML, Q2W
     Route: 058
     Dates: start: 20240529

REACTIONS (10)
  - Varicose vein [Unknown]
  - Skin striae [Unknown]
  - Injection site injury [Not Recovered/Not Resolved]
  - Incorrect dose administered by device [Unknown]
  - Accidental exposure to product [Unknown]
  - Exposure via skin contact [Unknown]
  - Wrong technique in device usage process [Unknown]
  - Physical product label issue [Unknown]
  - Liquid product physical issue [Unknown]
  - Inappropriate schedule of product administration [Unknown]

NARRATIVE: CASE EVENT DATE: 20250806
